FAERS Safety Report 7823656 (Version 2)
Quarter: 2012Q4

REPORT INFORMATION
  Report Type: 
  Country: VE (occurrence: VE)
  Receive Date: 20110223
  Receipt Date: 20121219
  Transmission Date: 20130627
  Serious: Yes (Hospitalization)
  Sender: FDA-Public Use
  Company Number: PHHY2011VE13200

PATIENT
  Age: 44 Year
  Sex: Male

DRUGS (7)
  1. SYMMETREL [Suspect]
     Indication: FATIGUE
     Dosage: UNK UKN, UNK
     Route: 048
     Dates: start: 2001
  2. TRILEPTAL [Suspect]
     Indication: TREMOR
     Dosage: 0.5 DF, UNK
     Route: 048
     Dates: start: 2003
  3. PREDNISONE [Suspect]
     Dosage: 50 mg, QD
  4. PREDNISONE [Suspect]
     Dosage: 20 mg, QD
  5. PREDNISONE [Suspect]
     Dosage: 15 mg, QD
  6. CALCIUM [Concomitant]
     Indication: HYPERTENSION
     Dosage: UNK UKN, UNK
  7. COPAXONE [Concomitant]
     Indication: MULTIPLE SCLEROSIS
     Dosage: UNK UKN, UNK
     Route: 042

REACTIONS (1)
  - Meningitis [Recovered/Resolved]
